FAERS Safety Report 9112387 (Version 1)
Quarter: 2013Q1

REPORT INFORMATION
  Report Type: Spontaneous
  Country: US (occurrence: US)
  Receive Date: 20130219
  Receipt Date: 20130219
  Transmission Date: 20140127
  Serious: No
  Sender: FDA-Public Use
  Company Number: US-BRISTOL-MYERS SQUIBB COMPANY-16709933

PATIENT
  Age: 72 Year
  Sex: Male

DRUGS (2)
  1. ORENCIA [Suspect]
     Indication: RHEUMATOID ARTHRITIS
     Dosage: LAST INF ON 12JUN12. DURATION 2-3 YEARS.
     Route: 042
  2. PRILOSEC [Suspect]

REACTIONS (1)
  - Diarrhoea [Unknown]
